FAERS Safety Report 9837023 (Version 1)
Quarter: 2014Q1

REPORT INFORMATION
  Report Type: Spontaneous
  Country: US (occurrence: US)
  Receive Date: 20140123
  Receipt Date: 20140123
  Transmission Date: 20141002
  Serious: No
  Sender: FDA-Public Use
  Company Number: US-PFIZER INC-2014018647

PATIENT
  Age: 63 Year
  Sex: Female

DRUGS (16)
  1. XELJANZ [Suspect]
     Indication: RHEUMATOID ARTHRITIS
     Dosage: 5 MG, 2X/DAY
     Route: 048
     Dates: start: 20131025
  2. NITROSTAT [Concomitant]
     Dosage: UNK
  3. CLONAZEPAM [Concomitant]
     Dosage: UNK
  4. LISINOPRIL [Concomitant]
     Dosage: UNK
  5. PEPCID [Concomitant]
     Dosage: UNK
  6. NASONEX [Concomitant]
     Dosage: UNK
  7. AMITRIPTYLINE [Concomitant]
     Dosage: UNK
  8. OXYBUTYNIN [Concomitant]
     Dosage: UNK
  9. AMITIZA [Concomitant]
     Dosage: UNK
  10. WELCHOL [Concomitant]
     Dosage: UNK
  11. PRO-AIR [Concomitant]
     Dosage: UNK
  12. OMEPRAZOLE [Concomitant]
     Dosage: UNK
  13. MORPHINE [Concomitant]
     Dosage: UNK
  14. LYRICA [Concomitant]
     Dosage: UNK
  15. ASPIRIN [Concomitant]
     Dosage: UNK
  16. LEVOTHYROXINE [Concomitant]
     Dosage: UNK

REACTIONS (3)
  - Palpitations [Recovering/Resolving]
  - Chest pain [Recovering/Resolving]
  - Influenza [Recovering/Resolving]
